FAERS Safety Report 15547810 (Version 3)
Quarter: 2018Q4

REPORT INFORMATION
  Report Type: Spontaneous
  Country: JP (occurrence: JP)
  Receive Date: 20181024
  Receipt Date: 20181203
  Transmission Date: 20190205
  Serious: Yes (Other)
  Sender: FDA-Public Use
  Company Number: JP-FERRINGPH-2018FE05723

PATIENT

DRUGS (6)
  1. MINIRINMELT [Suspect]
     Active Substance: DESMOPRESSIN ACETATE
     Indication: PRODUCT USED FOR UNKNOWN INDICATION
     Dosage: 60 ?G, 1 TIME DAILY IN THE MORNING
     Route: 048
     Dates: end: 20181004
  2. EXELON [Concomitant]
     Active Substance: RIVASTIGMINE TARTRATE
  3. THYRADIN [Concomitant]
     Active Substance: LEVOTHYROXINE
  4. CARVEDILOL. [Concomitant]
     Active Substance: CARVEDILOL
     Route: 048
  5. AMLODIPINE [Concomitant]
     Active Substance: AMLODIPINE BESYLATE
  6. MAGNESIUM OXIDE. [Concomitant]
     Active Substance: MAGNESIUM OXIDE

REACTIONS (4)
  - Polyuria [Unknown]
  - Loss of consciousness [Recovered/Resolved]
  - Hypertension [Unknown]
  - Hyponatraemia [Recovered/Resolved]
